FAERS Safety Report 23688364 (Version 3)
Quarter: 2025Q2

REPORT INFORMATION
  Report Type: Report from Study
  Country: CH (occurrence: CH)
  Receive Date: 20240329
  Receipt Date: 20250403
  Transmission Date: 20250717
  Serious: No
  Sender: CHIESI
  Company Number: CH-AMRYT PHARMACEUTICALS DAC-AEGR006991

PATIENT
  Sex: Male

DRUGS (2)
  1. METRELEPTIN [Suspect]
     Active Substance: METRELEPTIN
     Indication: Congenital generalised lipodystrophy
     Dates: start: 202209
  2. INSULIN NOS [Concomitant]
     Active Substance: INSULIN NOS
     Indication: Product used for unknown indication

REACTIONS (6)
  - Hepatic steatosis [Unknown]
  - Blood triglycerides increased [Unknown]
  - Nutritional condition abnormal [Unknown]
  - Glycosylated haemoglobin increased [Unknown]
  - Drug ineffective [Unknown]
  - Diet noncompliance [Unknown]
